FAERS Safety Report 16200536 (Version 4)
Quarter: 2024Q2

REPORT INFORMATION
  Report Type: Spontaneous
  Country: DE (occurrence: DE)
  Receive Date: 20190416
  Receipt Date: 20240402
  Transmission Date: 20240716
  Serious: Yes (Hospitalization, Other)
  Sender: FDA-Public Use
  Company Number: DE-SA-2019SA081055

PATIENT
  Age: 60 Year
  Sex: Male

DRUGS (25)
  1. TOPIRAMATE [Suspect]
     Active Substance: TOPIRAMATE
     Indication: Seizure
     Dosage: UNK
     Route: 048
  2. TOPIRAMATE [Suspect]
     Active Substance: TOPIRAMATE
     Indication: Post-anoxic myoclonus
  3. LAMOTRIGINE [Suspect]
     Active Substance: LAMOTRIGINE
     Indication: Seizure
     Dosage: UNK
     Route: 065
  4. LAMOTRIGINE [Suspect]
     Active Substance: LAMOTRIGINE
     Indication: Post-anoxic myoclonus
  5. GABAPENTIN [Suspect]
     Active Substance: GABAPENTIN
     Indication: Myoclonic epilepsy
     Dosage: UNK
     Route: 065
  6. GABAPENTIN [Suspect]
     Active Substance: GABAPENTIN
     Indication: Post-anoxic myoclonus
  7. PREGABALIN [Suspect]
     Active Substance: PREGABALIN
     Indication: Seizure
     Dosage: UNK
     Route: 065
  8. PREGABALIN [Suspect]
     Active Substance: PREGABALIN
     Indication: Post-anoxic myoclonus
  9. LEVETIRACETAM [Suspect]
     Active Substance: LEVETIRACETAM
     Indication: Seizure
     Dosage: 500 MILLIGRAM, ONCE A DAY
     Route: 065
  10. LEVETIRACETAM [Suspect]
     Active Substance: LEVETIRACETAM
     Indication: Post-anoxic myoclonus
     Dosage: 1500 MILLIGRAM, ONCE A DAY
     Route: 065
  11. CANNABIDIOL [Suspect]
     Active Substance: CANNABIDIOL
     Indication: Product used for unknown indication
     Dosage: WHICH WAS INCREASED OVER FOUR DAYS TO 750 MG DAILY
     Route: 065
  12. PERAMPANEL [Suspect]
     Active Substance: PERAMPANEL
     Indication: Post-anoxic myoclonus
     Dosage: 2 MILLIGRAM, ONCE A DAY, 2 MG, QD
     Route: 065
  13. PERAMPANEL [Suspect]
     Active Substance: PERAMPANEL
     Dosage: 8 MILLIGRAM, ONCE A DAY, 8 MG, QD
     Route: 065
  14. PERAMPANEL [Suspect]
     Active Substance: PERAMPANEL
     Dosage: 4 MILLIGRAM, ONCE A DAY
     Route: 065
  15. PIRACETAM [Suspect]
     Active Substance: PIRACETAM
     Indication: Post-anoxic myoclonus
     Dosage: UNK
     Route: 065
  16. CLONAZEPAM [Suspect]
     Active Substance: CLONAZEPAM
     Indication: Myoclonic epilepsy
     Dosage: 2 MILLIGRAM, ONCE A DAY, 2 MG, QD
     Route: 065
  17. CLONAZEPAM [Suspect]
     Active Substance: CLONAZEPAM
     Indication: Post-anoxic myoclonus
  18. DRONABINOL [Suspect]
     Active Substance: DRONABINOL
     Indication: Seizure
     Dosage: 20 GTT DROPS, ONCE A DAY, 20 DROP, QD
     Route: 065
  19. DRONABINOL [Suspect]
     Active Substance: DRONABINOL
     Dosage: 30 GTT DROPS, ONCE A DAY
     Route: 065
  20. BRIVARACETAM [Suspect]
     Active Substance: BRIVARACETAM
     Indication: Post-anoxic myoclonus
     Dosage: 150 MILLIGRAM, ONCE A DAY
     Route: 065
  21. ZONISAMIDE [Suspect]
     Active Substance: ZONISAMIDE
     Indication: Seizure
     Dosage: UNK
     Route: 065
  22. ZONISAMIDE [Suspect]
     Active Substance: ZONISAMIDE
     Indication: Post-anoxic myoclonus
  23. ESLICARBAZEPINE [Suspect]
     Active Substance: ESLICARBAZEPINE
     Indication: Seizure
     Dosage: UNK
     Route: 065
  24. ESLICARBAZEPINE [Suspect]
     Active Substance: ESLICARBAZEPINE
     Indication: Post-anoxic myoclonus
  25. VALPROATE [Suspect]
     Active Substance: VALPROIC ACID
     Indication: Post-anoxic myoclonus
     Dosage: UNK
     Route: 065

REACTIONS (17)
  - Fatigue [Unknown]
  - Aggression [Unknown]
  - Vomiting [Unknown]
  - Dystonia [Unknown]
  - Salivary hypersecretion [Unknown]
  - Rash [Unknown]
  - Nausea [Unknown]
  - Speech disorder [Unknown]
  - Drug intolerance [Unknown]
  - Condition aggravated [Unknown]
  - Dysarthria [Unknown]
  - Cerebellar ataxia [Unknown]
  - Facial paresis [Unknown]
  - Therapeutic response decreased [Unknown]
  - Drug ineffective [Unknown]
  - Parkinsonism [Unknown]
  - Myoclonus [Unknown]
